FAERS Safety Report 12171617 (Version 1)
Quarter: 2016Q1

REPORT INFORMATION
  Report Type: Spontaneous
  Country: BR (occurrence: BR)
  Receive Date: 20160311
  Receipt Date: 20160311
  Transmission Date: 20160526
  Serious: Yes (Other)
  Sender: FDA-Public Use
  Company Number: BR-JNJFOC-20160303993

PATIENT
  Sex: Female
  Weight: 70 kg

DRUGS (2)
  1. REMICADE [Suspect]
     Active Substance: INFLIXIMAB
     Indication: SACROILIITIS
     Route: 042
  2. ENBREL [Suspect]
     Active Substance: ETANERCEPT
     Indication: SACROILIITIS
     Route: 065

REACTIONS (8)
  - Asthenia [Unknown]
  - Off label use [Unknown]
  - Bedridden [Unknown]
  - Product use issue [Unknown]
  - Blood pressure decreased [Unknown]
  - Rheumatoid arthritis [Unknown]
  - Diarrhoea [Unknown]
  - Drug ineffective for unapproved indication [Unknown]

NARRATIVE: CASE EVENT DATE: 2015
